FAERS Safety Report 8523022-8 (Version None)
Quarter: 2012Q3

REPORT INFORMATION
  Report Type: 
  Country: None (occurrence: None)
  Receive Date: 20120720
  Receipt Date: 20120709
  Transmission Date: 20120928
  Serious: Yes (Other)
  Sender: FDA-Public Use
  Company Number: US-BRISTOL-MYERS SQUIBB COMPANY-16753972

PATIENT
  Age: 74 Year
  Sex: Female
  Weight: 49 kg

DRUGS (4)
  1. LISINOPRIL [Concomitant]
  2. NEXIUM [Concomitant]
  3. PRAVACHOL [Suspect]
     Dosage: RECEIVED 2 YRS AGO ALSO,LAST PRESCRIPTION REFILL ON 12JUN2012
     Dates: end: 20120101
  4. CLONIDINE [Concomitant]

REACTIONS (5)
  - GASTROINTESTINAL HAEMORRHAGE [None]
  - MELAENA [None]
  - ABDOMINAL DISCOMFORT [None]
  - NAUSEA [None]
  - ASTHENIA [None]
